FAERS Safety Report 15546628 (Version 1)
Quarter: 2018Q4

REPORT INFORMATION
  Report Type: Spontaneous
  Country: US (occurrence: US)
  Receive Date: 20181024
  Receipt Date: 20181024
  Transmission Date: 20190205
  Serious: Yes (Hospitalization)
  Sender: FDA-Public Use
  Company Number: US-PARI RESPIRATORY EQUIPMENT, INC.-2018PAR00072

PATIENT
  Age: 20 Year
  Sex: Female

DRUGS (8)
  1. DIAZEPAM. [Concomitant]
     Active Substance: DIAZEPAM
  2. BUDESONIDE. [Concomitant]
     Active Substance: BUDESONIDE
  3. PREVACID [Concomitant]
     Active Substance: LANSOPRAZOLE
  4. LAMICTAL [Concomitant]
     Active Substance: LAMOTRIGINE
  5. FYCOMPA [Concomitant]
     Active Substance: PERAMPANEL
  6. KITABIS PAK [Suspect]
     Active Substance: TOBRAMYCIN
     Indication: RESPIRATORY DISORDER
     Dosage: 5 ML, 2X/DAY, 28 DAYS ON AND THEN OFF
     Route: 055
     Dates: start: 20180518
  7. GABAPENTIN. [Concomitant]
     Active Substance: GABAPENTIN
  8. ONFI [Concomitant]
     Active Substance: CLOBAZAM

REACTIONS (2)
  - Sleep apnoea syndrome [Unknown]
  - Off label use [Unknown]

NARRATIVE: CASE EVENT DATE: 20180518
